FAERS Safety Report 11801173 (Version 2)
Quarter: 2015Q4

REPORT INFORMATION
  Report Type: Report from Study
  Country: US (occurrence: US)
  Receive Date: 20151204
  Receipt Date: 20151228
  Transmission Date: 20160305
  Serious: Yes (Hospitalization, Other)
  Sender: FDA-Public Use
  Company Number: US-TEVA-612701USA

PATIENT
  Age: 40 Year
  Sex: Female
  Weight: 53.57 kg

DRUGS (15)
  1. CARBOPLATIN. [Suspect]
     Active Substance: CARBOPLATIN
     Indication: TRIPLE NEGATIVE BREAST CANCER
     Dosage: CHEMOTHERAPY SEGMENT 1
     Route: 042
     Dates: start: 20150526, end: 20150526
  2. CARBOPLATIN. [Suspect]
     Active Substance: CARBOPLATIN
     Dosage: CHEMOTHERAPY SEGMENT 1
     Route: 042
     Dates: start: 20150731, end: 20150731
  3. ABT-888 (VELIPARIB) (BLINDED) [Suspect]
     Active Substance: VELIPARIB
     Indication: TRIPLE NEGATIVE BREAST CANCER
     Dosage: CHEMOTHERAPY SEGMENT 1
     Route: 048
     Dates: start: 20150528, end: 20150618
  4. CYCLOPHOSPHAMIDE. [Suspect]
     Active Substance: CYCLOPHOSPHAMIDE
     Indication: TRIPLE NEGATIVE BREAST CANCER
     Route: 042
     Dates: start: 20150827
  5. XANAX [Concomitant]
     Active Substance: ALPRAZOLAM
     Indication: ANXIETY
  6. CARBOPLATIN. [Suspect]
     Active Substance: CARBOPLATIN
     Dosage: CHEMOTHERAPY SEGMENT 1
     Route: 042
     Dates: start: 20150710, end: 20150710
  7. WELLBUTRIN [Concomitant]
     Active Substance: BUPROPION HYDROCHLORIDE
     Indication: DEPRESSION
     Dosage: 150 MILLIGRAM DAILY;
     Route: 048
     Dates: start: 2015
  8. DOXORUBICIN [Suspect]
     Active Substance: DOXORUBICIN
     Indication: TRIPLE NEGATIVE BREAST CANCER
     Route: 042
     Dates: start: 20150827
  9. ABT-888 (VELIPARIB) (BLINDED) [Suspect]
     Active Substance: VELIPARIB
     Route: 042
     Dates: start: 20150711, end: 20150731
  10. PACLITAXEL. [Suspect]
     Active Substance: PACLITAXEL
     Indication: TRIPLE NEGATIVE BREAST CANCER
     Route: 042
     Dates: start: 20150526, end: 20150820
  11. CARBOPLATIN. [Suspect]
     Active Substance: CARBOPLATIN
     Dosage: CHEMOTHERAPY SEGMENT 1
     Route: 042
     Dates: start: 20150618, end: 20150618
  12. XANAX [Concomitant]
     Active Substance: ALPRAZOLAM
     Indication: INSOMNIA
     Dosage: .5 MILLIGRAM DAILY;
     Dates: start: 2015
  13. ABT-888 (VELIPARIB) (BLINDED) [Suspect]
     Active Substance: VELIPARIB
     Route: 042
     Dates: start: 20150618, end: 20150708
  14. ABT-888 (VELIPARIB) (BLINDED) [Suspect]
     Active Substance: VELIPARIB
     Route: 042
     Dates: start: 20150801, end: 20150821
  15. AMBIEN [Concomitant]
     Active Substance: ZOLPIDEM TARTRATE
     Indication: INSOMNIA
     Dosage: 10 MILLIGRAM DAILY;
     Route: 048
     Dates: start: 2015

REACTIONS (2)
  - Febrile neutropenia [Recovered/Resolved]
  - Clostridium difficile colitis [Unknown]

NARRATIVE: CASE EVENT DATE: 20150904
